FAERS Safety Report 5866231-9 (Version None)
Quarter: 2008Q3

REPORT INFORMATION
  Report Type: 
  Country: None (occurrence: None)
  Receive Date: 20080829
  Receipt Date: 20080820
  Transmission Date: 20090109
  Serious: Yes (Hospitalization)
  Sender: FDA-Public Use
  Company Number: DE-PFIZER INC-2008069911

PATIENT
  Sex: Female

DRUGS (1)
  1. SOBELIN [Suspect]
     Indication: SINUS DISORDER
     Route: 048

REACTIONS (2)
  - DEEP VEIN THROMBOSIS [None]
  - PSEUDOMEMBRANOUS COLITIS [None]
